FAERS Safety Report 7598402-8 (Version None)
Quarter: 2011Q3

REPORT INFORMATION
  Report Type: 
  Country: None (occurrence: None)
  Receive Date: 20110708
  Receipt Date: 20110706
  Transmission Date: 20111222
  Serious: Yes (Death)
  Sender: FDA-Public Use
  Company Number: CA-ABBOTT-11P-028-0836710-00

PATIENT
  Age: 8 Month
  Sex: Female

DRUGS (12)
  1. NORVIR [Suspect]
     Indication: PRODUCT USED FOR UNKNOWN INDICATION
  2. CIPROFLOXACIN [Concomitant]
     Indication: PRODUCT USED FOR UNKNOWN INDICATION
  3. KALETRA [Suspect]
     Indication: PRODUCT USED FOR UNKNOWN INDICATION
  4. LAMIVUDINE [Suspect]
     Indication: PRODUCT USED FOR UNKNOWN INDICATION
  5. AMIKACIN SULFATE [Concomitant]
     Indication: PRODUCT USED FOR UNKNOWN INDICATION
     Dosage: USP
     Route: 030
  6. PYRAZINAMIDE [Concomitant]
     Indication: PRODUCT USED FOR UNKNOWN INDICATION
  7. HEPATITIS B VACCINE [Suspect]
     Indication: PRODUCT USED FOR UNKNOWN INDICATION
  8. ISONIAZID [Concomitant]
     Indication: PRODUCT USED FOR UNKNOWN INDICATION
  9. ZIDOVUDINE [Suspect]
     Indication: PRODUCT USED FOR UNKNOWN INDICATION
  10. COTRIM [Concomitant]
     Indication: PRODUCT USED FOR UNKNOWN INDICATION
  11. ETHAMBUTOL HYDROCHLORIDE [Concomitant]
     Indication: PRODUCT USED FOR UNKNOWN INDICATION
  12. RIFAMPICIN [Concomitant]
     Indication: PRODUCT USED FOR UNKNOWN INDICATION

REACTIONS (14)
  - BLOOD BILIRUBIN INCREASED [None]
  - BRAIN OEDEMA [None]
  - ALANINE AMINOTRANSFERASE INCREASED [None]
  - CONVULSION [None]
  - HEPATIC CIRRHOSIS [None]
  - ACUTE HEPATIC FAILURE [None]
  - HAEMORRHAGE [None]
  - TOXICITY TO VARIOUS AGENTS [None]
  - HEPATIC ENCEPHALOPATHY [None]
  - BLOOD LACTATE DEHYDROGENASE INCREASED [None]
  - COAGULOPATHY [None]
  - HEPATIC FAILURE [None]
  - MENTAL STATUS CHANGES [None]
  - IMMUNE RECONSTITUTION SYNDROME [None]
